FAERS Safety Report 9475633 (Version 1)
Quarter: 2013Q3

REPORT INFORMATION
  Report Type: Spontaneous
  Country: DE (occurrence: DE)
  Receive Date: 20130826
  Receipt Date: 20130826
  Transmission Date: 20140515
  Serious: Yes (Other)
  Sender: FDA-Public Use
  Company Number: PHHY2013DE091181

PATIENT
  Age: 38 Year
  Sex: Female
  Weight: 87 kg

DRUGS (4)
  1. TIMOX [Suspect]
     Indication: EPILEPSY
     Dosage: 450 MG/DAY (UP TO 4 TH WEEK OF PREGNANCY)
  2. TIMOX [Suspect]
     Dosage: 600 MG/DAY (DISTRIBUTION NOT STATED)
     Route: 048
  3. BALDRIANWURZEL HLP [Suspect]
     Indication: SLEEP DISORDER
     Dosage: UNK UKN, UNK
     Route: 048
  4. FOLSAEURE [Concomitant]
     Indication: PROPHYLAXIS OF NEURAL TUBE DEFECT
     Dosage: 5 MG, DAILY
     Route: 048

REACTIONS (1)
  - Abortion late [Recovered/Resolved]
